FAERS Safety Report 9345176 (Version 6)
Quarter: 2013Q4

REPORT INFORMATION
  Report Type: Spontaneous
  Country: ES (occurrence: ES)
  Receive Date: 20130612
  Receipt Date: 20131021
  Transmission Date: 20140711
  Serious: Yes (Hospitalization, Other)
  Sender: FDA-Public Use
  Company Number: ES-PFIZER INC-2013170801

PATIENT
  Age: 57 Year
  Sex: Male

DRUGS (2)
  1. SUTENT [Suspect]
     Indication: RENAL CANCER
     Dosage: 50 MG, 1X/DAY
     Route: 048
     Dates: start: 20100324, end: 20110125
  2. SUTENT [Suspect]
     Dosage: 37.5 MG, UNK
     Dates: start: 20110126, end: 20110404

REACTIONS (7)
  - Gastrointestinal toxicity [Recovered/Resolved]
  - Renal failure acute [Unknown]
  - Dehydration [Recovered/Resolved]
  - Diarrhoea [Unknown]
  - Vomiting [Unknown]
  - Disease progression [Unknown]
  - Renal cancer [Unknown]
